FAERS Safety Report 9036924 (Version 1)
Quarter: 2013Q1

REPORT INFORMATION
  Report Type: Spontaneous
  Country: US (occurrence: None)
  Receive Date: 20130123
  Receipt Date: 20130123
  Transmission Date: 20140127
  Serious: Yes (Life-Threatening, Hospitalization)
  Sender: FDA-Public Use
  Company Number: None

PATIENT
  Age: 85 Year
  Sex: Male
  Weight: 108.6 kg

DRUGS (14)
  1. XARELTO [Suspect]
     Indication: DEEP VEIN THROMBOSIS
     Route: 048
     Dates: start: 20121219, end: 20130107
  2. SOTALOL -BETAPACE- [Concomitant]
  3. ESOMEPRAZOLE -NEXIUM- [Concomitant]
  4. OXAPROZIN -DAYPRO- [Concomitant]
  5. GABAPENTIN -NEURONTIN- [Concomitant]
  6. FOLIC ACID [Concomitant]
  7. CHLORZOXAZONE -PARAFON FORTE- [Concomitant]
  8. ACETAMINOPHEN [Concomitant]
  9. VITAMIN E [Concomitant]
  10. EZETIMIBE/SIMVASTATIN -VYTORIN- [Concomitant]
  11. ALPRAZOLAM -XANAX- [Concomitant]
  12. ASPIRIN [Concomitant]
  13. NIACIN ER -NIASPAN- [Concomitant]
  14. INDAPAMIDE [Concomitant]

REACTIONS (6)
  - Fall [None]
  - Cervical vertebral fracture [None]
  - Cervical vertebral fracture [None]
  - Dislocation of vertebra [None]
  - Procedural haemorrhage [None]
  - Post procedural haemorrhage [None]
